FAERS Safety Report 25350650 (Version 1)
Quarter: 2025Q2

REPORT INFORMATION
  Report Type: Spontaneous
  Country: US (occurrence: US)
  Receive Date: 20250523
  Receipt Date: 20250523
  Transmission Date: 20250717
  Serious: No
  Sender: AMGEN
  Company Number: US-AMGEN-USASP2025097463

PATIENT
  Age: 9 Decade
  Sex: Male

DRUGS (2)
  1. TEPEZZA [Suspect]
     Active Substance: TEPROTUMUMAB-TRBW
     Indication: Product used for unknown indication
     Route: 040
  2. TEPEZZA [Suspect]
     Active Substance: TEPROTUMUMAB-TRBW
     Route: 040
     Dates: start: 20250515

REACTIONS (6)
  - Fatigue [Unknown]
  - Somnolence [Unknown]
  - Hypoaesthesia [Unknown]
  - Myalgia [Unknown]
  - Rash [Unknown]
  - Therapeutic product effect incomplete [Unknown]
